FAERS Safety Report 4627204-7 (Version None)
Quarter: 2005Q1

REPORT INFORMATION
  Report Type: 
  Country: None (occurrence: None)
  Receive Date: 20050330
  Receipt Date: 20050318
  Transmission Date: 20050727
  Serious: Yes (Life-Threatening, Hospitalization)
  Sender: FDA-Public Use
  Company Number: 213127

PATIENT
  Age: 64 Year
  Sex: Female

DRUGS (4)
  1. RITUXAN [Suspect]
     Indication: NON-HODGKIN'S LYMPHOMA
     Dosage: 412 MG
     Dates: start: 20040803, end: 20040810
  2. DOXEPHIN (DOXEPHIN HYDROCHLORIDE) [Concomitant]
  3. ZEVALIN (IBITUMOMAB TIUXETAN) [Concomitant]
  4. SYNTHROID [Concomitant]

REACTIONS (2)
  - DRUG INEFFECTIVE [None]
  - PARANEOPLASTIC SYNDROME [None]
